FAERS Safety Report 9924029 (Version 1)
Quarter: 2014Q1

REPORT INFORMATION
  Report Type: Spontaneous
  Country: US (occurrence: US)
  Receive Date: 20140225
  Receipt Date: 20140225
  Transmission Date: 20141002
  Serious: No
  Sender: FDA-Public Use
  Company Number: US-TEVA-463900USA

PATIENT
  Sex: Male
  Weight: 77.18 kg

DRUGS (1)
  1. PROAIR HFA [Suspect]
     Dates: start: 20140214

REACTIONS (1)
  - Dyspnoea [Not Recovered/Not Resolved]
